FAERS Safety Report 24273404 (Version 3)
Quarter: 2024Q3

REPORT INFORMATION
  Report Type: Spontaneous
  Country: CA (occurrence: CA)
  Receive Date: 20240902
  Receipt Date: 20240925
  Transmission Date: 20241017
  Serious: Yes (Hospitalization, Other)
  Sender: CELLTRION
  Company Number: CA-PFIZER INC-202400116393

PATIENT

DRUGS (11)
  1. INFLECTRA [Suspect]
     Active Substance: INFLIXIMAB-DYYB
     Indication: Colitis ulcerative
     Dosage: 5 MG/KG (345 MG), W 0, 2, 6 WEEKS THEN EVERY 8 WEEKS (WEEK 0)
     Route: 042
     Dates: start: 20240516
  2. INFLECTRA [Suspect]
     Active Substance: INFLIXIMAB-DYYB
     Dosage: 5 MG/KG (350 MG) WEEK 2 INDUCTION DOSE (AFTER 2 WEEKS AND 1 DAY)
     Route: 042
     Dates: start: 20240531
  3. INFLECTRA [Suspect]
     Active Substance: INFLIXIMAB-DYYB
     Dosage: 5 MG/KG (350 MG), 4 WEEKS
     Route: 042
     Dates: start: 20240627
  4. INFLECTRA [Suspect]
     Active Substance: INFLIXIMAB-DYYB
     Dosage: UNK
     Route: 042
     Dates: start: 20240727
  5. INFLECTRA [Suspect]
     Active Substance: INFLIXIMAB-DYYB
     Dosage: 350 MG, AFTER 3 WEEKS AND 6 DAYS (PRESCRIBED EVERY 8 WEEKS)
     Route: 042
     Dates: start: 20240823
  6. CALCIUM\VITAMIN D [Concomitant]
     Active Substance: CALCIUM\VITAMIN D
     Dosage: UNK
  7. MORPHINE [Concomitant]
     Active Substance: MORPHINE
     Dosage: UNK
  8. PENTASA [Concomitant]
     Active Substance: MESALAMINE
     Dosage: 1 DF
     Dates: start: 2018
  9. PREDNISONE [Concomitant]
     Active Substance: PREDNISONE
     Dosage: 1 DF
     Route: 048
     Dates: start: 20240411
  10. PREDNISONE [Concomitant]
     Active Substance: PREDNISONE
     Dosage: 20 MG, IN WITHDRAWAL FREQUENCY UNKNOWN
     Route: 048
  11. DIENOGEST [Concomitant]
     Active Substance: DIENOGEST
     Dosage: UNK

REACTIONS (8)
  - Condition aggravated [Recovered/Resolved]
  - Drug ineffective [Unknown]
  - Night sweats [Recovered/Resolved]
  - Headache [Not Recovered/Not Resolved]
  - Pain [Recovered/Resolved]
  - Fatigue [Recovered/Resolved]
  - Off label use [Unknown]
  - Inappropriate schedule of product administration [Unknown]

NARRATIVE: CASE EVENT DATE: 20240101
